FAERS Safety Report 5956910-7 (Version None)
Quarter: 2008Q4

REPORT INFORMATION
  Report Type: 
  Country: None (occurrence: None)
  Receive Date: 20081117
  Receipt Date: 20081117
  Transmission Date: 20090506
  Serious: Yes (Other)
  Sender: FDA-Public Use
  Company Number: None

PATIENT
  Age: 77 Year
  Sex: Male
  Weight: 102.0593 kg

DRUGS (2)
  1. HYTRIN [Suspect]
     Indication: HYPERTENSION
     Dosage: 5 MG 1 AT BEDTIME
     Dates: start: 20081111
  2. HYTRIN [Suspect]
     Indication: PROSTATOMEGALY
     Dosage: 5 MG 1 AT BEDTIME
     Dates: start: 20081111

REACTIONS (6)
  - BLOOD PRESSURE DECREASED [None]
  - EPISTAXIS [None]
  - FACE INJURY [None]
  - FALL [None]
  - LOSS OF CONSCIOUSNESS [None]
  - UNRESPONSIVE TO STIMULI [None]
